FAERS Safety Report 11053331 (Version 2)
Quarter: 2020Q1

REPORT INFORMATION
  Report Type: Spontaneous
  Country: US (occurrence: US)
  Receive Date: 20150421
  Receipt Date: 20200214
  Transmission Date: 20200409
  Serious: Yes (Hospitalization, Other)
  Sender: FDA-Public Use
  Company Number: US-B.I. PHARMACEUTICALS,INC./RIDGEFIELD-2015-BI-20289BP

PATIENT
  Age: 79 Year
  Sex: Female

DRUGS (1)
  1. SPIRIVA [Suspect]
     Active Substance: TIOTROPIUM BROMIDE MONOHYDRATE
     Indication: CHRONIC OBSTRUCTIVE PULMONARY DISEASE
     Route: 055
     Dates: start: 2004

REACTIONS (7)
  - Herpes zoster [Unknown]
  - Lymphoma [Unknown]
  - Urinary tract infection [Unknown]
  - Fungal infection [Unknown]
  - Arthritis [Not Recovered/Not Resolved]
  - Influenza [Unknown]
  - Chest pain [Unknown]

NARRATIVE: CASE EVENT DATE: 2005
